FAERS Safety Report 19078203 (Version 1)
Quarter: 2021Q1

REPORT INFORMATION
  Report Type: Spontaneous
  Country: US (occurrence: US)
  Receive Date: 20210331
  Receipt Date: 20210331
  Transmission Date: 20210420
  Serious: Yes (Other)
  Sender: FDA-Public Use
  Company Number: US-PFIZER INC-2021313975

PATIENT
  Age: 42 Year

DRUGS (1)
  1. SKELAXIN [Suspect]
     Active Substance: METAXALONE
     Dosage: UNK

REACTIONS (5)
  - Gait disturbance [Unknown]
  - Pain [Unknown]
  - Stress [Unknown]
  - Illness [Unknown]
  - Rheumatoid arthritis [Unknown]
